FAERS Safety Report 9194255 (Version 1)
Quarter: 2013Q1

REPORT INFORMATION
  Report Type: Spontaneous
  Country: CN (occurrence: CN)
  Receive Date: 20130327
  Receipt Date: 20130327
  Transmission Date: 20140127
  Serious: Yes (Other)
  Sender: FDA-Public Use
  Company Number: PHHY2013CN027161

PATIENT
  Sex: Male

DRUGS (4)
  1. TACROLIMUS [Suspect]
     Dosage: 5 MG, PER DAY
  2. MYCOPHENOLATE MOFETIL [Suspect]
     Dosage: 750 MG, PER DAY
  3. METHYLPREDNISOLONE [Suspect]
     Dosage: 1 G, PER DAY
  4. ANTITHYMOCYTE IMMUNOGLOBULIN [Suspect]
     Dosage: 100 MG, PER DAY

REACTIONS (7)
  - Extremity necrosis [Unknown]
  - Wound [Unknown]
  - Arthralgia [Unknown]
  - Hyperglycaemia [Recovering/Resolving]
  - Fungal infection [Unknown]
  - Transplant rejection [Unknown]
  - Dermatitis [Recovering/Resolving]
